FAERS Safety Report 13227782 (Version 2)
Quarter: 2017Q2

REPORT INFORMATION
  Report Type: Spontaneous
  Country: JP (occurrence: JP)
  Receive Date: 20170213
  Receipt Date: 20170623
  Transmission Date: 20170830
  Serious: Yes (Death, Hospitalization, Other)
  Sender: FDA-Public Use
  Company Number: PHJP2017JP005111

PATIENT
  Age: 64 Year
  Sex: Female

DRUGS (4)
  1. AMLODIN [Suspect]
     Active Substance: AMLODIPINE BESYLATE
     Indication: PRODUCT USED FOR UNKNOWN INDICATION
     Dosage: 5 MG, QD
     Route: 048
     Dates: start: 20120130
  2. AMARYL [Suspect]
     Active Substance: GLIMEPIRIDE
     Indication: PRODUCT USED FOR UNKNOWN INDICATION
     Dosage: 1 DF, QD
     Route: 048
     Dates: start: 20120130
  3. DESFERAL [Suspect]
     Active Substance: DEFEROXAMINE MESYLATE
     Indication: HAEMOCHROMATOSIS
     Dosage: 500 MG, UNK
     Route: 042
     Dates: start: 20150806, end: 20151230
  4. BLOPRESS [Suspect]
     Active Substance: CANDESARTAN CILEXETIL
     Indication: PRODUCT USED FOR UNKNOWN INDICATION
     Dosage: 4 MG, QD
     Route: 048
     Dates: start: 20120130

REACTIONS (14)
  - Haemarthrosis [Unknown]
  - Pneumonia [Unknown]
  - Humerus fracture [Unknown]
  - Nausea [Recovered/Resolved]
  - Disseminated intravascular coagulation [Unknown]
  - Spinal compression fracture [Unknown]
  - Anaemia [Unknown]
  - Death [Fatal]
  - Haemorrhage subcutaneous [Unknown]
  - Blister [Unknown]
  - Oedema peripheral [Unknown]
  - Renal failure [Unknown]
  - C-reactive protein increased [Unknown]
  - Decubitus ulcer [Unknown]

NARRATIVE: CASE EVENT DATE: 20151230
